FAERS Safety Report 19904555 (Version 1)
Quarter: 2021Q4

REPORT INFORMATION
  Report Type: Other
  Country: CN (occurrence: CN)
  Receive Date: 20211001
  Receipt Date: 20211001
  Transmission Date: 20220303
  Serious: Yes (Other)
  Sender: FDA-Public Use
  Company Number: CN-ROCHE-2919344

PATIENT

DRUGS (2)
  1. CAPECITABINE [Suspect]
     Active Substance: CAPECITABINE
     Indication: Rectal cancer
     Dosage: NCRT REGIMEN: DOSE WAS 825 MG/M2; CAPEOX REGIMEN: DOSE WAS 1000 MG/M2
     Route: 048
  2. OXALIPLATIN [Suspect]
     Active Substance: OXALIPLATIN
     Indication: Rectal cancer
     Dosage: DAY1
     Route: 042

REACTIONS (5)
  - Neutrophil count decreased [Unknown]
  - Anaemia [Unknown]
  - Platelet count decreased [Unknown]
  - Gastrointestinal disorder [Unknown]
  - Gastroenteritis radiation [Unknown]
